FAERS Safety Report 5796685-8 (Version None)
Quarter: 2008Q2

REPORT INFORMATION
  Report Type: 
  Country: None (occurrence: None)
  Receive Date: 20080630
  Receipt Date: 20080630
  Transmission Date: 20081010
  Serious: Yes (Hospitalization)
  Sender: FDA-Public Use
  Company Number: None

PATIENT
  Sex: Female
  Weight: 95.2554 kg

DRUGS (10)
  1. BEVACIZUMAB 25MG/ML GENETECH, INC. [Suspect]
     Indication: GLIOBLASTOMA MULTIFORME
     Dosage: 10MG/KG Q 2 WEEKS IV DRIP
     Route: 041
     Dates: start: 20080529, end: 20080529
  2. BEVACIZUMAB 25MG/ML GENETECH, INC. [Suspect]
     Indication: GLIOBLASTOMA MULTIFORME
     Dosage: 10MG/KG Q 2 WEEKS IV DRIP
     Route: 041
     Dates: start: 20080612, end: 20080612
  3. CLARITIN [Concomitant]
  4. CATAPRES [Concomitant]
  5. NEURONTIN [Concomitant]
  6. INSULIN [Concomitant]
  7. GLUCOPHAGE [Concomitant]
  8. PRILOSEC [Concomitant]
  9. DECADRON [Concomitant]
  10. OXYCODONE HCL [Concomitant]

REACTIONS (3)
  - APHASIA [None]
  - HEMIPARESIS [None]
  - NEUROLOGICAL SYMPTOM [None]
